FAERS Safety Report 9596731 (Version 1)
Quarter: 2013Q4

REPORT INFORMATION
  Report Type: Spontaneous
  Country: US (occurrence: US)
  Receive Date: 20131003
  Receipt Date: 20131003
  Transmission Date: 20140711
  Serious: Yes (Other)
  Sender: FDA-Public Use
  Company Number: US-AMGEN-USASP2012073598

PATIENT
  Age: 65 Year
  Sex: Female
  Weight: 93.42 kg

DRUGS (10)
  1. ENBREL [Suspect]
     Indication: PRODUCT USED FOR UNKNOWN INDICATION
     Dosage: 25 MG, 2 TIMES/WK
     Route: 058
  2. ZOCOR [Concomitant]
     Dosage: 10 MG, UNK
  3. PROTONIX [Concomitant]
     Dosage: 20 MG, UNK
  4. METHOTREXATE [Concomitant]
     Dosage: 2.5 MG, UNK
  5. SYNTHROID [Concomitant]
     Dosage: 50 MUG, UNK
  6. LAMISIL                            /00992601/ [Concomitant]
     Dosage: 250 MG, UNK
  7. CARDIZEM CD [Concomitant]
     Dosage: 240 MG/24
  8. FOLIC ACID [Concomitant]
     Dosage: 1 MG, UNK
  9. OXYBUTYNIN [Concomitant]
     Dosage: 5 MG, UNK
  10. KEFLEX                             /00145501/ [Concomitant]
     Dosage: 250 MG, UNK

REACTIONS (1)
  - Skin cancer [Unknown]
